FAERS Safety Report 15807597 (Version 1)
Quarter: 2018Q4

REPORT INFORMATION
  Report Type: Spontaneous
  Country: US (occurrence: US)
  Receive Date: 20181214
  Receipt Date: 20181214
  Transmission Date: 20190205
  Serious: No
  Sender: FDA-Public Use
  Company Number: None

PATIENT
  Age: 49 Year
  Sex: Female
  Weight: 117.93 kg

DRUGS (3)
  1. ENBREL [Suspect]
     Active Substance: ETANERCEPT
     Indication: RHEUMATOID FACTOR POSITIVE
     Route: 058
     Dates: start: 201807
  2. ENBREL [Suspect]
     Active Substance: ETANERCEPT
     Indication: RHEUMATOID ARTHRITIS
     Route: 058
     Dates: start: 201807
  3. ENBREL [Suspect]
     Active Substance: ETANERCEPT
     Indication: PAIN
     Route: 058
     Dates: start: 201807

REACTIONS (1)
  - Arthritis [None]
